FAERS Safety Report 15968299 (Version 1)
Quarter: 2019Q1

REPORT INFORMATION
  Report Type: Spontaneous
  Country: US (occurrence: US)
  Receive Date: 20190215
  Receipt Date: 20190215
  Transmission Date: 20190418
  Serious: No
  Sender: FDA-Public Use
  Company Number: US-SA-2019SA043959

PATIENT

DRUGS (7)
  1. HUMIRA [Suspect]
     Active Substance: ADALIMUMAB
     Dosage: UNK
     Dates: start: 201101, end: 201208
  2. ACTEMRA [Suspect]
     Active Substance: TOCILIZUMAB
     Dosage: UNK
     Dates: start: 201601, end: 201610
  3. METHOTREXATE. [Suspect]
     Active Substance: METHOTREXATE
  4. ARAVA [Suspect]
     Active Substance: LEFLUNOMIDE
  5. ORENCIA [Suspect]
     Active Substance: ABATACEPT
     Dosage: UNK
     Dates: start: 201611, end: 201711
  6. SULFASALAZINE. [Suspect]
     Active Substance: SULFASALAZINE
  7. ENBREL [Suspect]
     Active Substance: ETANERCEPT

REACTIONS (3)
  - Fatigue [Unknown]
  - Unevaluable event [Unknown]
  - Gastrointestinal disorder [Unknown]
